FAERS Safety Report 15309821 (Version 1)
Quarter: 2018Q3

REPORT INFORMATION
  Report Type: Spontaneous
  Country: US (occurrence: US)
  Receive Date: 20180812
  Receipt Date: 20180812
  Transmission Date: 20181010
  Serious: Yes (Disabling)
  Sender: FDA-Public Use
  Company Number: None

PATIENT
  Age: 39 Year
  Sex: Female
  Weight: 67.5 kg

DRUGS (9)
  1. TURMERIC [Concomitant]
     Active Substance: HERBALS\TURMERIC
  2. OSTEOBIFLEX [Concomitant]
  3. ZOLOFT [Concomitant]
     Active Substance: SERTRALINE HYDROCHLORIDE
  4. ACIDOPHILUS [Concomitant]
     Active Substance: LACTOBACILLUS ACIDOPHILUS
  5. LEVAQUIN [Suspect]
     Active Substance: LEVOFLOXACIN
     Indication: LUNG INFECTION
     Dosage: ?          QUANTITY:1 DF DOSAGE FORM;?
     Route: 048
  6. ZANTAC [Concomitant]
     Active Substance: RANITIDINE HYDROCHLORIDE
  7. IBUPROFEN. [Concomitant]
     Active Substance: IBUPROFEN
  8. ZYRTEC [Concomitant]
     Active Substance: CETIRIZINE HYDROCHLORIDE
  9. OREGANO OIL [Concomitant]

REACTIONS (6)
  - Myalgia [None]
  - Pain [None]
  - Arthralgia [None]
  - Inflammation [None]
  - Neuralgia [None]
  - Gait disturbance [None]

NARRATIVE: CASE EVENT DATE: 20180520
